FAERS Safety Report 14527865 (Version 2)
Quarter: 2018Q1

REPORT INFORMATION
  Report Type: Report from Study
  Country: US (occurrence: BR)
  Receive Date: 20180213
  Receipt Date: 20180226
  Transmission Date: 20180509
  Serious: Yes (Other)
  Sender: FDA-Public Use
  Company Number: US-SUNOVION-2018SUN000547

PATIENT
  Sex: Female
  Weight: 72 kg

DRUGS (6)
  1. SIMVASTIN [Concomitant]
     Active Substance: SIMVASTATIN
     Dosage: 20 MG, UNK
  2. AMLODIPINE [Concomitant]
     Active Substance: AMLODIPINE BESYLATE
     Dosage: 5 MG, UNK
  3. AMLODIPINE [Concomitant]
     Active Substance: AMLODIPINE BESYLATE
     Dosage: 5 MG, UNK
  4. INDACATEROL AND GLYCOPYRROLATE [Suspect]
     Active Substance: GLYCOPYRROLATE\INDACATEROL MALEATE
     Indication: PULMONARY FIBROSIS
     Dosage: 1 DF, (GLYCOPYRRONIUM BROMIDE 50 UG/ INDACATEROL 110 UG), QD
     Route: 055
  5. LEVOID [Concomitant]
     Active Substance: LEVOTHYROXINE
     Dosage: 75 MG, UNK
  6. ASA [Concomitant]
     Active Substance: ASPIRIN
     Dosage: 100 MG, UNK

REACTIONS (4)
  - Condition aggravated [Not Recovered/Not Resolved]
  - Pulmonary fibrosis [Not Recovered/Not Resolved]
  - Product use in unapproved indication [Unknown]
  - Body height decreased [Unknown]
